FAERS Safety Report 17618819 (Version 1)
Quarter: 2020Q2

REPORT INFORMATION
  Report Type: Spontaneous
  Country: US (occurrence: US)
  Receive Date: 20200402
  Receipt Date: 20200402
  Transmission Date: 20200713
  Serious: No
  Sender: FDA-Public Use
  Company Number: US-JNJFOC-20200344707

PATIENT
  Sex: Male

DRUGS (4)
  1. RISPERDAL [Suspect]
     Active Substance: RISPERIDONE
     Indication: DELUSION
     Route: 048
     Dates: start: 20040907, end: 20040920
  2. RISPERDAL [Suspect]
     Active Substance: RISPERIDONE
     Dosage: 0.5 MG IN THE MORNING AND 1 MG AT HOUR OF SLEEP
     Route: 048
  3. RISPERDAL [Suspect]
     Active Substance: RISPERIDONE
     Dosage: 4 MG TABLET
     Route: 048
  4. RISPERDAL [Suspect]
     Active Substance: RISPERIDONE
     Indication: HALLUCINATION
     Route: 048
     Dates: start: 20040825

REACTIONS (1)
  - Gynaecomastia [Unknown]
